FAERS Safety Report 22006812 (Version 13)
Quarter: 2025Q4

REPORT INFORMATION
  Report Type: Report from Study
  Country: CA (occurrence: CA)
  Receive Date: 20230217
  Receipt Date: 20251214
  Transmission Date: 20260118
  Serious: Yes (Hospitalization, Other)
  Sender: HLS THERAPEUTICS
  Company Number: CA-HLS-202300194

PATIENT
  Sex: Male

DRUGS (1)
  1. CLOZARIL [Suspect]
     Active Substance: CLOZAPINE
     Indication: Product used for unknown indication
     Route: 048
     Dates: start: 20040329

REACTIONS (7)
  - Hypocalcaemia [Unknown]
  - Neutrophil count decreased [Recovered/Resolved]
  - Infection [Recovered/Resolved]
  - COVID-19 [Recovered/Resolved]
  - Fatigue [Unknown]
  - Neoplasm malignant [Unknown]
  - Throat cancer [Unknown]
